FAERS Safety Report 4350700-7 (Version None)
Quarter: 2004Q2

REPORT INFORMATION
  Report Type: 
  Country: None (occurrence: None)
  Receive Date: 20040427
  Receipt Date: 20040413
  Transmission Date: 20050107
  Serious: Yes (Hospitalization)
  Sender: FDA-Public Use
  Company Number: 6008392

PATIENT
  Age: 61 Year
  Sex: Male

DRUGS (5)
  1. DIANBEN (850 MG, TABLETS) (METFORMIN HDYROCHLORIDE) [Suspect]
     Indication: DIABETES MELLITUS
     Dosage: 1700 MG, ORAL
     Route: 048
     Dates: start: 19990101, end: 20040315
  2. DAONIL (5 MG)  (GLIBENCLAMIDE) [Suspect]
     Indication: DIABETES MELLITUS
     Dates: start: 19990101, end: 20040315
  3. PANTOPRAZOL I(PANTOPRAZOLE) [Suspect]
     Indication: PEPTIC ULCER
     Dates: end: 20040315
  4. PLAVIX [Concomitant]
  5. GABAPETINE [Concomitant]

REACTIONS (3)
  - HEPATIC STEATOSIS [None]
  - PANCREATITIS [None]
  - WHITE BLOOD CELL COUNT INCREASED [None]
